FAERS Safety Report 4771557-6 (Version None)
Quarter: 2005Q3

REPORT INFORMATION
  Report Type: 
  Country: None (occurrence: None)
  Receive Date: 20050914
  Receipt Date: 20050914
  Transmission Date: 20060218
  Serious: Yes (Other)
  Sender: FDA-Public Use
  Company Number: None

PATIENT
  Age: 36 Year
  Sex: Female
  Weight: 68.0396 kg

DRUGS (2)
  1. LEXAPRO [Suspect]
     Indication: DEPRESSION
     Dosage: 20 MG QD PO
     Route: 048
     Dates: start: 20050701, end: 20050911
  2. LEXAPRO [Suspect]
     Indication: DYSTHYMIC DISORDER
     Dosage: 20 MG QD PO
     Route: 048
     Dates: start: 20050701, end: 20050911

REACTIONS (1)
  - ALOPECIA [None]
